FAERS Safety Report 9238911 (Version 1)
Quarter: 2013Q2

REPORT INFORMATION
  Report Type: Report from Study
  Country: US (occurrence: US)
  Receive Date: 20130418
  Receipt Date: 20130418
  Transmission Date: 20140414
  Serious: Yes (Hospitalization)
  Sender: FDA-Public Use
  Company Number: PHHO2013US005094

PATIENT
  Age: 63 Year
  Sex: Female
  Weight: 63.7 kg

DRUGS (19)
  1. AFINITOR [Suspect]
     Indication: NEOPLASM
     Dosage: 10 MG, QD
     Route: 048
     Dates: start: 20130221, end: 20130408
  2. AMG479 [Suspect]
     Indication: NEOPLASM
     Dosage: 12 MG/KG, Q2WEEKS
     Dates: start: 20130307, end: 20130404
  3. ALLEGRA [Concomitant]
     Indication: HYPERSENSITIVITY
     Dosage: 180 MG, QD
     Route: 048
  4. LEVOXYL [Concomitant]
     Dosage: 50 MG, QD
     Route: 048
     Dates: start: 201001
  5. ATIVAN [Concomitant]
     Indication: ANXIETY
     Dosage: 5.2 MG, PRN
     Route: 048
     Dates: start: 201111
  6. LOSARTAN [Concomitant]
     Indication: HYPERTENSION
     Dosage: 100 MG, QD
     Route: 048
  7. METOPROLOL [Concomitant]
     Indication: HYPERTENSION
     Dosage: 75 MG, QD
     Route: 048
  8. PRILOSEC [Concomitant]
     Indication: DYSPEPSIA
     Dosage: 20 MG, QD
     Route: 048
  9. BRINZOLAMIDE [Concomitant]
     Indication: GLAUCOMA
     Dosage: T GGT BOTH EYES QD
  10. TRAVOPROST [Concomitant]
     Indication: GLAUCOMA
     Dosage: 0.009% BOTH EYES QD
  11. FINECEF CV [Concomitant]
     Dosage: UNK
  12. HYDROMORPHONE [Concomitant]
     Indication: COUGH
     Dosage: T TSP G 46 PRN
     Dates: start: 201212
  13. COMPAZINE [Concomitant]
     Indication: NAUSEA
     Dosage: 10 MG G6 PRN
     Route: 048
  14. COLACE [Concomitant]
     Indication: CONSTIPATION
     Dosage: 100 MG T PO TID
     Route: 048
     Dates: start: 20130225
  15. AMBIEN [Concomitant]
     Indication: INSOMNIA
     Dosage: 5 MG T PO
     Route: 048
     Dates: start: 20130225
  16. ZOFRAN [Concomitant]
     Indication: NAUSEA
     Dosage: 8 MG, BID
     Route: 060
     Dates: start: 20130321
  17. D5LRS [Concomitant]
     Indication: DEHYDRATION
     Dosage: UNK
     Dates: start: 20130404, end: 20130404
  18. CODEINE [Concomitant]
     Indication: COUGH
     Dosage: UNK
     Dates: start: 201212
  19. PROVIGIL [Concomitant]
     Indication: FATIGUE
     Dosage: 200 MG T PO QD
     Route: 048
     Dates: start: 20130321

REACTIONS (1)
  - Large intestine perforation [Unknown]
